FAERS Safety Report 15615192 (Version 2)
Quarter: 2018Q4

REPORT INFORMATION
  Report Type: Other
  Country: ES (occurrence: ES)
  Receive Date: 20181114
  Receipt Date: 20181123
  Transmission Date: 20190205
  Serious: Yes (Other)
  Sender: FDA-Public Use
  Company Number: ES-APOTEX-2018AP024478

PATIENT
  Age: 23 Year
  Sex: Male

DRUGS (17)
  1. RIVOTRIL [Suspect]
     Active Substance: CLONAZEPAM
     Indication: ANXIETY
     Dosage: 0.5 MG, UNK, 3 TO 4 TIMES A DAY
     Route: 048
     Dates: start: 2014
  2. ZINC. [Suspect]
     Active Substance: ZINC
     Indication: PRODUCT USED FOR UNKNOWN INDICATION
     Dosage: 1 DF, QD
     Route: 048
     Dates: start: 2018
  3. DEPRAX                             /00447702/ [Suspect]
     Active Substance: TRAZODONE HYDROCHLORIDE
     Indication: DEPRESSION
     Dosage: 50 MG, QD
     Route: 048
     Dates: start: 2014
  4. PARACETAMOL [Concomitant]
     Active Substance: ACETAMINOPHEN
     Indication: VIRAL TONSILLITIS
     Dosage: 1000 MG, TID
     Route: 065
     Dates: start: 20181005, end: 20181009
  5. AMOXICILLIN CLAVULANIC ACID [Concomitant]
     Active Substance: AMOXICILLIN\CLAVULANIC ACID
     Indication: VIRAL TONSILLITIS
     Dosage: 1 DF, TID
     Route: 065
     Dates: start: 20181005, end: 20181015
  6. IBUPROFENO [Concomitant]
     Active Substance: IBUPROFEN
     Indication: VIRAL TONSILLITIS
     Dosage: 1 DF, TID
     Route: 065
     Dates: start: 20181005, end: 20181008
  7. PAROXETINE. [Suspect]
     Active Substance: PAROXETINE
     Indication: GENERALISED ANXIETY DISORDER
     Dosage: 20 MG, BID,  ONE IN THE MORNING, THE OTHER IN THE AFTERNOON
     Route: 048
     Dates: start: 2014
  8. VITAMIN B6 [Suspect]
     Active Substance: PYRIDOXINE HYDROCHLORIDE
     Indication: SOMNOLENCE
     Dosage: 50 MG, QD
     Route: 048
     Dates: start: 2018, end: 2018
  9. DEPRAX                             /00447702/ [Suspect]
     Active Substance: TRAZODONE HYDROCHLORIDE
     Dosage: 25 MG, QD
     Route: 048
     Dates: start: 2014
  10. VENLAFAXINA RETARD SALUTAS [Suspect]
     Active Substance: VENLAFAXINE HYDROCHLORIDE
     Indication: DEPRESSION
     Dosage: 37.5 MG, QD
     Route: 048
     Dates: start: 2017
  11. VITAMIN B6 [Suspect]
     Active Substance: PYRIDOXINE HYDROCHLORIDE
     Indication: SOMNOLENCE
  12. DENUBIL [Suspect]
     Active Substance: DEANOL PIDOLATE\HEPTAMINOL HYDROCHLORIDE
     Indication: SOMNOLENCE
     Dosage: 1 DF, BID,  ONE IN THE MORNING, THE OTHER IN THE AFTERNOON
     Route: 048
     Dates: start: 2018
  13. OMEGA 3                            /01333901/ [Suspect]
     Active Substance: FISH OIL\TOCOPHEROL
     Indication: DEPRESSION
     Dosage: 2 DF, QD, IN THE MORNING
     Route: 048
     Dates: start: 2015
  14. GABAPENTINA [Suspect]
     Active Substance: GABAPENTIN
     Indication: ANXIETY
     Dosage: 300 MG, TID
     Route: 048
     Dates: start: 2017
  15. CISTINA [Suspect]
     Active Substance: CYSTINE
     Indication: ALOPECIA
     Dosage: 250 MG, QD
     Route: 048
     Dates: start: 2012
  16. SEROXAT [Suspect]
     Active Substance: PAROXETINE HYDROCHLORIDE
     Indication: GENERALISED ANXIETY DISORDER
     Dosage: 20 MG, BID,  ONE IN THE MORNING, THE OTHER IN THE AFTERNOON
     Route: 048
     Dates: start: 2014
  17. ORFIDAL [Suspect]
     Active Substance: LORAZEPAM
     Indication: ANXIETY
     Dosage: 1 MG, UNK,
     Route: 048
     Dates: start: 2015

REACTIONS (6)
  - Depression [Not Recovered/Not Resolved]
  - Agitation [Not Recovered/Not Resolved]
  - Anxiety [Not Recovered/Not Resolved]
  - Somnolence [Not Recovered/Not Resolved]
  - Condition aggravated [Not Recovered/Not Resolved]
  - Memory impairment [Not Recovered/Not Resolved]

NARRATIVE: CASE EVENT DATE: 2014
